FAERS Safety Report 10101359 (Version 1)
Quarter: 2014Q2

REPORT INFORMATION
  Report Type: Spontaneous
  Country: US (occurrence: US)
  Receive Date: 20140424
  Receipt Date: 20140424
  Transmission Date: 20141212
  Serious: No
  Sender: FDA-Public Use
  Company Number: US-PFIZER INC-2014113038

PATIENT
  Sex: Female

DRUGS (1)
  1. LYRICA [Suspect]
     Dosage: 150 MG, 2X/DAY

REACTIONS (5)
  - Pain [Unknown]
  - Dry skin [Unknown]
  - Dry mouth [Unknown]
  - Dry eye [Unknown]
  - Middle insomnia [Unknown]
